FAERS Safety Report 20611879 (Version 1)
Quarter: 2022Q1

REPORT INFORMATION
  Report Type: Spontaneous
  Country: JP (occurrence: None)
  Receive Date: 20220318
  Receipt Date: 20220318
  Transmission Date: 20220423
  Serious: Yes (Other)
  Sender: FDA-Public Use
  Company Number: 2022A114191

PATIENT
  Age: 59 Year
  Sex: Female

DRUGS (2)
  1. NEXIUM [Suspect]
     Active Substance: ESOMEPRAZOLE MAGNESIUM
     Indication: Gastrooesophageal reflux disease
     Dosage: AT NIGHT, ?OSE UNKNOWN
     Route: 048
  2. KALLIDINOGENASE [Concomitant]
     Active Substance: KALLIDINOGENASE
     Dosage: DOSE UNKNOWN
     Route: 065

REACTIONS (6)
  - Patella fracture [Unknown]
  - Cystitis [Unknown]
  - Pseudomonas infection [Unknown]
  - Hyperaesthesia teeth [Unknown]
  - Retinal disorder [Unknown]
  - Abdominal discomfort [Unknown]
